APPROVED DRUG PRODUCT: FORMOTEROL FUMARATE
Active Ingredient: FORMOTEROL FUMARATE
Strength: 0.02MG/2ML
Dosage Form/Route: SOLUTION;INHALATION
Application: A215078 | Product #001 | TE Code: AN
Applicant: ALEMBIC PHARMACEUTICALS LTD
Approved: Nov 22, 2021 | RLD: No | RS: No | Type: RX